FAERS Safety Report 4502341-6 (Version None)
Quarter: 2004Q4

REPORT INFORMATION
  Report Type: 
  Country: None (occurrence: None)
  Receive Date: 20041110
  Receipt Date: 20041029
  Transmission Date: 20050328
  Serious: Yes (Life-Threatening, Hospitalization, Other)
  Sender: FDA-Public Use
  Company Number: K200401679

PATIENT
  Age: 74 Year
  Sex: Male

DRUGS (11)
  1. ALTACE [Suspect]
     Indication: CORONARY ARTERY DISEASE
     Dosage: 2.5 MG, QD,  ORAL
     Route: 048
     Dates: end: 20040708
  2. FELODIPINE (FELODIPINE) TABLET, 2.5MG [Suspect]
     Indication: CORONARY ARTERY DISEASE
     Dosage: 2.5 MG, QD, ORAL
     Route: 048
     Dates: end: 20040708
  3. PIRETANIDE (PIRETANIDE) 3MG [Suspect]
     Indication: HYPERTENSION
     Dosage: 3 MG, QD, ORAL
     Route: 048
     Dates: end: 20040708
  4. CORVATON - SLOW RELEASE ^AVENTIS PHARMA^ (MOLSIDOMINE) TABLET, 8 MG [Suspect]
     Indication: CORONARY ARTERY DISEASE
     Dosage: 8 MG, BID, ORAL
     Route: 048
     Dates: end: 20040708
  5. AMIODARONE HCL [Suspect]
     Indication: ARRHYTHMIA
     Dosage: 200 MG, QD, ORAL
     Route: 048
  6. TEVETEN [Suspect]
     Indication: HYPERTENSION
     Dosage: 600 MG, QD, ORAL
     Route: 048
     Dates: start: 20030101, end: 20040708
  7. BERLINSULIN H BASAL (INSULIN INJECTION, ISOPHANE) SOLUTION [Concomitant]
  8. BERLINSULIN H NORMAL (INSULIN) SOLUTION [Concomitant]
  9. HERZASS ^RATIOPHARM^ (ACETYLSALICYLIC ACID) TABLET [Concomitant]
  10. MANINIL ^BERLIN-CHEMIE^ (GLIBENCLAMIDE) TABLET [Concomitant]
  11. PRAVASIN (PRAVASTATIN SODIUM) TABLET [Concomitant]

REACTIONS (18)
  - ABASIA [None]
  - ACTIVATED PARTIAL THROMBOPLASTIN TIME PROLONGED [None]
  - ARTHRALGIA [None]
  - BLOOD POTASSIUM DECREASED [None]
  - BUNDLE BRANCH BLOCK LEFT [None]
  - DIZZINESS [None]
  - DYSPNOEA [None]
  - HAEMATOCRIT DECREASED [None]
  - HAEMOGLOBIN DECREASED [None]
  - HYPERHIDROSIS [None]
  - HYPOGLYCAEMIA [None]
  - HYPOTENSION [None]
  - INTERNATIONAL NORMALISED RATIO DECREASED [None]
  - LABORATORY TEST ABNORMAL [None]
  - MALAISE [None]
  - RENAL FAILURE [None]
  - SINUS BRADYCARDIA [None]
  - TROPONIN [None]
